FAERS Safety Report 5519820-5 (Version None)
Quarter: 2007Q4

REPORT INFORMATION
  Report Type: 
  Country: None (occurrence: None)
  Receive Date: 20071116
  Receipt Date: 20070904
  Transmission Date: 20080405
  Serious: No
  Sender: FDA-Public Use
  Company Number: A0678408A

PATIENT
  Age: 65 Year
  Sex: Male

DRUGS (10)
  1. COREG CR [Suspect]
     Dosage: 20MG PER DAY
     Route: 048
     Dates: start: 20040903
  2. METFORMIN HCL [Concomitant]
  3. ACTOS [Concomitant]
  4. LANOXIN [Concomitant]
  5. FUROSEMIDE [Concomitant]
  6. GLYBURIDE [Concomitant]
  7. K-DUR 10 [Concomitant]
  8. LIPITOR [Concomitant]
  9. NITROGLYCERIN [Concomitant]
  10. BENICAR [Concomitant]

REACTIONS (1)
  - BLOOD GLUCOSE INCREASED [None]
